FAERS Safety Report 9794296 (Version 1)
Quarter: 2014Q1

REPORT INFORMATION
  Report Type: Spontaneous
  Country: FR (occurrence: FR)
  Receive Date: 20140102
  Receipt Date: 20140102
  Transmission Date: 20141002
  Serious: Yes (Hospitalization, Other)
  Sender: FDA-Public Use
  Company Number: FR-PFIZER INC-2013369781

PATIENT
  Age: 71 Year
  Sex: Female

DRUGS (8)
  1. TAHOR [Suspect]
     Dosage: 10 MG, 1X/DAY
     Route: 048
     Dates: start: 2010, end: 201312
  2. NEORAL [Concomitant]
  3. CORTANCYL [Concomitant]
  4. LASILIX [Concomitant]
  5. INIPOMP [Concomitant]
  6. LEVOTHYROX [Concomitant]
  7. UVEDOSE [Concomitant]
  8. DETENSIEL [Concomitant]

REACTIONS (3)
  - Interstitial lung disease [Not Recovered/Not Resolved]
  - Pneumonia staphylococcal [Unknown]
  - Bacteraemia [Unknown]
